FAERS Safety Report 17730284 (Version 2)
Quarter: 2020Q4

REPORT INFORMATION
  Report Type: Spontaneous
  Country: US (occurrence: US)
  Receive Date: 20200430
  Receipt Date: 20201214
  Transmission Date: 20210113
  Serious: No
  Sender: FDA-Public Use
  Company Number: US-BLUEPRINT MEDICINES CORPORATION-SP-US-2020-000262

PATIENT
  Age: 62 Year
  Sex: Male

DRUGS (4)
  1. AYVAKIT [Suspect]
     Active Substance: AVAPRITINIB
     Route: 048
     Dates: start: 20200227
  2. AYVAKIT [Suspect]
     Active Substance: AVAPRITINIB
     Route: 048
     Dates: start: 20200220
  3. AYVAKIT [Suspect]
     Active Substance: AVAPRITINIB
     Route: 048
     Dates: start: 20200115
  4. AYVAKIT [Suspect]
     Active Substance: AVAPRITINIB
     Indication: GASTROINTESTINAL STROMAL TUMOUR
     Route: 048
     Dates: start: 20200220

REACTIONS (10)
  - Chest discomfort [Unknown]
  - Swelling face [Unknown]
  - Pharyngeal oedema [Not Recovered/Not Resolved]
  - Odynophagia [Recovering/Resolving]
  - Procedural pain [Not Recovered/Not Resolved]
  - Decreased appetite [Recovered/Resolved]
  - Sensation of foreign body [Recovered/Resolved]
  - Amnesia [Unknown]
  - Lacrimation increased [Unknown]
  - Memory impairment [Not Recovered/Not Resolved]

NARRATIVE: CASE EVENT DATE: 20200115
